FAERS Safety Report 19014815 (Version 2)
Quarter: 2021Q1

REPORT INFORMATION
  Report Type: Spontaneous
  Country: US (occurrence: US)
  Receive Date: 20210317
  Receipt Date: 20210323
  Transmission Date: 20210420
  Serious: Yes (Hospitalization)
  Sender: FDA-Public Use
  Company Number: US-ASTRAZENECA-2021A132692

PATIENT
  Age: 20160 Day
  Sex: Female
  Weight: 114.8 kg

DRUGS (51)
  1. NORVASC [Concomitant]
     Active Substance: AMLODIPINE BESYLATE
  2. TYLENOL [Concomitant]
     Active Substance: ACETAMINOPHEN
  3. DULCOLAX NOS [Concomitant]
     Active Substance: BISACODYL OR DOCUSATE SODIUM
  4. LISINOPRIL. [Concomitant]
     Active Substance: LISINOPRIL
  5. DILAUDID [Concomitant]
     Active Substance: HYDROMORPHONE HYDROCHLORIDE
  6. DECADRON [Concomitant]
     Active Substance: DEXAMETHASONE
  7. GLUTOSE [Concomitant]
     Active Substance: DEXTROSE
  8. REGLAN [Concomitant]
     Active Substance: METOCLOPRAMIDE HYDROCHLORIDE
  9. LOPRESSOR [Concomitant]
     Active Substance: METOPROLOL TARTRATE
  10. ATIVAN [Concomitant]
     Active Substance: LORAZEPAM
  11. MAGNESIUM SULFATE. [Concomitant]
     Active Substance: MAGNESIUM SULFATE
  12. CLEOCIN [Concomitant]
     Active Substance: CLINDAMYCIN PHOSPHATE
  13. MOTRIN [Concomitant]
     Active Substance: IBUPROFEN
  14. MONISTAT [Concomitant]
     Active Substance: MICONAZOLE NITRATE
  15. SENNA [Concomitant]
     Active Substance: SENNA LEAF\SENNOSIDES\SENNOSIDES A AND B
  16. FARXIGA [Suspect]
     Active Substance: DAPAGLIFLOZIN PROPANEDIOL
     Indication: BLOOD PRESSURE DECREASED
     Route: 048
     Dates: start: 20180329
  17. FARXIGA [Suspect]
     Active Substance: DAPAGLIFLOZIN PROPANEDIOL
     Indication: BLOOD PRESSURE DECREASED
     Route: 048
     Dates: start: 20181007
  18. AMARYL [Concomitant]
     Active Substance: GLIMEPIRIDE
  19. ZESTORETIC [Concomitant]
     Active Substance: HYDROCHLOROTHIAZIDE\LISINOPRIL
  20. CRESTOR [Concomitant]
     Active Substance: ROSUVASTATIN CALCIUM
  21. FLAGYL [Concomitant]
     Active Substance: METRONIDAZOLE\METRONIDAZOLE HYDROCHLORIDE
  22. MAXIPIME [Concomitant]
     Active Substance: CEFEPIME HYDROCHLORIDE
  23. ZITHROMAX [Concomitant]
     Active Substance: AZITHROMYCIN DIHYDRATE
  24. GLUCOPHAGE [Concomitant]
     Active Substance: METFORMIN HYDROCHLORIDE
  25. ZOFRAN [Concomitant]
     Active Substance: ONDANSETRON HYDROCHLORIDE
  26. SUBLIMAZE [Concomitant]
     Active Substance: FENTANYL CITRATE
  27. MORPHINE [Concomitant]
     Active Substance: MORPHINE
  28. ROXICODONE [Concomitant]
     Active Substance: OXYCODONE HYDROCHLORIDE
  29. NORMODYNE [Concomitant]
     Active Substance: LABETALOL HYDROCHLORIDE
  30. TRANEXAMIC ACID. [Concomitant]
     Active Substance: TRANEXAMIC ACID
  31. NORCO [Concomitant]
     Active Substance: ACETAMINOPHEN\HYDROCODONE BITARTRATE
  32. FOLIC ACID. [Concomitant]
     Active Substance: FOLIC ACID
  33. COMPAZINE [Concomitant]
     Active Substance: PROCHLORPERAZINE MALEATE
  34. LIDOCAINE. [Concomitant]
     Active Substance: LIDOCAINE
  35. APRESOLINE HYDROCHLORIDE [Concomitant]
     Active Substance: HYDRALAZINE HYDROCHLORIDE
  36. ENOXAPARIN SODIUM. [Concomitant]
     Active Substance: ENOXAPARIN SODIUM
  37. FARXIGA [Suspect]
     Active Substance: DAPAGLIFLOZIN PROPANEDIOL
     Indication: WEIGHT DECREASED
     Route: 048
     Dates: start: 20180329
  38. FARXIGA [Suspect]
     Active Substance: DAPAGLIFLOZIN PROPANEDIOL
     Indication: TYPE 2 DIABETES MELLITUS
     Route: 048
     Dates: start: 20181007
  39. VANCOMYCIN [Concomitant]
     Active Substance: VANCOMYCIN
  40. TRULICITY [Concomitant]
     Active Substance: DULAGLUTIDE
  41. DEMEROL [Concomitant]
     Active Substance: MEPERIDINE HYDROCHLORIDE
  42. FARXIGA [Suspect]
     Active Substance: DAPAGLIFLOZIN PROPANEDIOL
     Indication: TYPE 2 DIABETES MELLITUS
     Route: 048
     Dates: start: 20180329
  43. FARXIGA [Suspect]
     Active Substance: DAPAGLIFLOZIN PROPANEDIOL
     Indication: WEIGHT DECREASED
     Route: 048
     Dates: start: 20181007
  44. PROZAC [Concomitant]
     Active Substance: FLUOXETINE HYDROCHLORIDE
  45. LIDOCAINE?EPINEPHRINE [Concomitant]
     Active Substance: EPINEPHRINE\LIDOCAINE
  46. FLOXIN [Concomitant]
     Active Substance: OFLOXACIN
  47. VITAMIN B12 [Concomitant]
     Active Substance: CYANOCOBALAMIN
  48. BACTRIM [Concomitant]
     Active Substance: SULFAMETHOXAZOLE\TRIMETHOPRIM
  49. DIPRIVAN [Concomitant]
     Active Substance: PROPOFOL
  50. PERCOCET [Concomitant]
     Active Substance: ACETAMINOPHEN\OXYCODONE HYDROCHLORIDE
  51. POTASSIUM CHLORIDE. [Concomitant]
     Active Substance: POTASSIUM CHLORIDE

REACTIONS (11)
  - Abscess limb [Unknown]
  - Vaginal cellulitis [Unknown]
  - Fournier^s gangrene [Unknown]
  - Cellulitis [Unknown]
  - Sepsis [Unknown]
  - Vulval abscess [Unknown]
  - Vulval cellulitis [Unknown]
  - Perineal cellulitis [Unknown]
  - Necrotising fasciitis [Unknown]
  - Septic shock [Unknown]
  - Perineal abscess [Unknown]

NARRATIVE: CASE EVENT DATE: 20181007
